FAERS Safety Report 9361056 (Version 2)
Quarter: 2013Q3

REPORT INFORMATION
  Report Type: Report from Study
  Country: BE (occurrence: BE)
  Receive Date: 20130621
  Receipt Date: 20130708
  Transmission Date: 20140515
  Serious: Yes (Hospitalization, Other)
  Sender: FDA-Public Use
  Company Number: BE-ASTELLAS-2012EU010844

PATIENT
  Age: 16 Year
  Sex: Female
  Weight: 62.5 kg

DRUGS (4)
  1. SOLIFENACIN [Suspect]
     Indication: HYPERTONIC BLADDER
     Dosage: 5 MG, UNKNOWN/D
     Route: 048
     Dates: start: 20120917
  2. IBUPROFEN [Concomitant]
     Indication: PAIN
     Dosage: 600 MG, TID
     Route: 048
     Dates: start: 20121002, end: 20121005
  3. IBUPROFEN [Concomitant]
     Dosage: 600 MG, TID
     Route: 048
     Dates: start: 20121010, end: 20121020
  4. XYZALL [Concomitant]
     Indication: HYPERSENSITIVITY
     Dosage: 5 MG, UID/QD
     Route: 048

REACTIONS (3)
  - Syringomyelia [Recovered/Resolved with Sequelae]
  - Spinal cord oedema [Recovered/Resolved with Sequelae]
  - Spinal cord compression [Recovered/Resolved with Sequelae]
